FAERS Safety Report 23150028 (Version 2)
Quarter: 2023Q4

REPORT INFORMATION
  Report Type: Spontaneous
  Country: US (occurrence: US)
  Receive Date: 20231106
  Receipt Date: 20231115
  Transmission Date: 20240109
  Serious: No
  Sender: FDA-Public Use
  Company Number: US-PFIZER INC-202300355515

PATIENT
  Age: 32 Year
  Sex: Male
  Weight: 71 kg

DRUGS (2)
  1. PRECEDEX [Suspect]
     Active Substance: DEXMEDETOMIDINE HYDROCHLORIDE
     Indication: Agitation
     Dosage: 0.2 UG/KG/HOUR
     Route: 041
     Dates: start: 20230908
  2. PRECEDEX [Suspect]
     Active Substance: DEXMEDETOMIDINE HYDROCHLORIDE
     Dosage: TITRATED UP TO 1.5MCG/KG/HOUR IN FIRST 24 HOURS
     Route: 041
     Dates: end: 20231003

REACTIONS (4)
  - Agitation [Recovered/Resolved]
  - Withdrawal hypertension [Unknown]
  - Tachycardia [Unknown]
  - Off label use [Unknown]

NARRATIVE: CASE EVENT DATE: 20230101
